FAERS Safety Report 9083496 (Version 1)
Quarter: 2013Q1

REPORT INFORMATION
  Report Type: Report from Study
  Country: US (occurrence: US)
  Receive Date: 20130131
  Receipt Date: 20130131
  Transmission Date: 20140127
  Serious: No
  Sender: FDA-Public Use
  Company Number: US-ABBOTT-12P-163-1011022-00

PATIENT
  Age: 58 Year
  Sex: Female

DRUGS (7)
  1. HUMIRA [Suspect]
     Indication: BENIGN FAMILIAL PEMPHIGUS
  2. HUMIRA [Suspect]
     Indication: BENIGN FAMILIAL PEMPHIGUS
  3. CAPTOPRIL HCTZ [Concomitant]
     Indication: PRODUCT USED FOR UNKNOWN INDICATION
  4. ESTRADIOL [Concomitant]
     Indication: PRODUCT USED FOR UNKNOWN INDICATION
     Dosage: 1MG
  5. FLEXERIL [Concomitant]
     Indication: PRODUCT USED FOR UNKNOWN INDICATION
  6. XANAX [Concomitant]
     Indication: INSOMNIA
     Dosage: 0.75MG
  7. PREDNISONE [Concomitant]
     Indication: SKIN DISORDER
     Dosage: 10-15MG DAILY

REACTIONS (6)
  - Off label use [Not Recovered/Not Resolved]
  - Rash vesicular [Not Recovered/Not Resolved]
  - Nasopharyngitis [Not Recovered/Not Resolved]
  - Fatigue [Not Recovered/Not Resolved]
  - Herpes simplex [Not Recovered/Not Resolved]
  - Drug dose omission [Unknown]
